FAERS Safety Report 11210888 (Version 2)
Quarter: 2015Q3

REPORT INFORMATION
  Report Type: Report from Study
  Country: CA (occurrence: CA)
  Receive Date: 20150622
  Receipt Date: 20150727
  Transmission Date: 20151125
  Serious: Yes (Disabling, Other)
  Sender: FDA-Public Use
  Company Number: PHHY2014CA139181

PATIENT
  Age: 38 Year
  Sex: Male

DRUGS (3)
  1. LITHIUM. [Concomitant]
     Active Substance: LITHIUM
     Indication: PRODUCT USED FOR UNKNOWN INDICATION
     Route: 065
  2. CLOZARIL [Suspect]
     Active Substance: CLOZAPINE
     Indication: PSYCHOTIC DISORDER
  3. CLOZARIL [Suspect]
     Active Substance: CLOZAPINE
     Indication: MOOD ALTERED
     Dosage: 450 MG, QD (DAILY)
     Route: 048
     Dates: start: 20130617, end: 20150618

REACTIONS (2)
  - Obsessive-compulsive disorder [Recovered/Resolved with Sequelae]
  - Influenza like illness [Unknown]

NARRATIVE: CASE EVENT DATE: 201410
